FAERS Safety Report 6395349-X (Version None)
Quarter: 2009Q4

REPORT INFORMATION
  Report Type: 
  Country: None (occurrence: None)
  Receive Date: 20091009
  Receipt Date: 20090928
  Transmission Date: 20100525
  Serious: Yes (Hospitalization)
  Sender: FDA-Public Use
  Company Number: US-JNJCH-2009025878

PATIENT
  Age: 35 Year
  Sex: Male
  Weight: 81.6 kg

DRUGS (1)
  1. COOL MINT LISTERINE [Suspect]
     Indication: DENTAL DISORDER PROPHYLAXIS
     Dosage: TEXT:10 ML ONCE
     Route: 048
     Dates: start: 20090927, end: 20090927

REACTIONS (3)
  - APPLICATION SITE BURN [None]
  - EXPIRED DRUG ADMINISTERED [None]
  - ORAL MUCOSAL EXFOLIATION [None]
